FAERS Safety Report 10217612 (Version 2)
Quarter: 2014Q2

REPORT INFORMATION
  Report Type: Report from Study
  Country: NL (occurrence: NL)
  Receive Date: 20140604
  Receipt Date: 20140623
  Transmission Date: 20141212
  Serious: Yes (Hospitalization)
  Sender: FDA-Public Use
  Company Number: NL-BAXTER-2014BAX027954

PATIENT
  Age: 49 Year
  Sex: Male

DRUGS (2)
  1. KIOVIG, 100 MG/ML, OPLOSSING VOOR INFUSIE  (30 G/300 ML) [Suspect]
     Indication: MULTIFOCAL MOTOR NEUROPATHY
     Dosage: 30G 1X PER 2 WEEKS
     Route: 042
     Dates: start: 20140428, end: 20140428
  2. KIOVIG, 100 MG/ML, OPLOSSING VOOR INFUSIE  (30 G/300 ML) [Suspect]
     Dosage: 30G 1X PER 2 WEEKS
     Route: 042
     Dates: start: 20140526, end: 20140526

REACTIONS (1)
  - Pericarditis [Recovering/Resolving]
